FAERS Safety Report 8174620-5 (Version None)
Quarter: 2012Q1

REPORT INFORMATION
  Report Type: 
  Country: None (occurrence: None)
  Receive Date: 20120229
  Receipt Date: 20120224
  Transmission Date: 20120608
  Serious: No
  Sender: FDA-Public Use
  Company Number: US-PFIZER INC-2012021790

PATIENT
  Sex: Female

DRUGS (5)
  1. GABAPENTIN [Suspect]
     Indication: INSOMNIA
     Dosage: 100 MG, 2X/DAY
     Route: 048
     Dates: start: 20110504, end: 20111001
  2. ALPRAZOLAM [Concomitant]
     Dosage: 1 MG, 2X/DAY
  3. GABAPENTIN [Suspect]
     Indication: PAIN
  4. CELEXA [Concomitant]
     Dosage: 20 MG, QHS
  5. GABAPENTIN [Suspect]
     Indication: ANXIETY

REACTIONS (2)
  - URINE ODOUR ABNORMAL [None]
  - URINE ABNORMALITY [None]
